FAERS Safety Report 21982400 (Version 2)
Quarter: 2023Q1

REPORT INFORMATION
  Report Type: Spontaneous
  Country: US (occurrence: US)
  Receive Date: 20230213
  Receipt Date: 20230302
  Transmission Date: 20230417
  Serious: Yes (Hospitalization, Other)
  Sender: FDA-Public Use
  Company Number: US-BIOGEN-2023BI01186915

PATIENT
  Sex: Female

DRUGS (2)
  1. TYSABRI [Suspect]
     Active Substance: NATALIZUMAB
     Indication: Multiple sclerosis
     Route: 050
     Dates: start: 20090318, end: 20130725
  2. TYSABRI [Suspect]
     Active Substance: NATALIZUMAB
     Route: 050
     Dates: start: 20170324, end: 20221214

REACTIONS (6)
  - Pneumonia [Unknown]
  - Sarcoidosis [Unknown]
  - Lymphadenopathy [Unknown]
  - Systemic lupus erythematosus [Unknown]
  - Pulmonary hypertension [Unknown]
  - Arteritis [Unknown]

NARRATIVE: CASE EVENT DATE: 20190101
